FAERS Safety Report 5780943-7 (Version None)
Quarter: 2008Q2

REPORT INFORMATION
  Report Type: 
  Country: None (occurrence: None)
  Receive Date: 20080620
  Receipt Date: 20080610
  Transmission Date: 20081010
  Serious: Yes (Other)
  Sender: FDA-Public Use
  Company Number: US-PFIZER INC-2008047630

PATIENT
  Sex: Female

DRUGS (1)
  1. CHANTIX [Suspect]

REACTIONS (16)
  - ADVERSE EVENT [None]
  - ANAEMIA [None]
  - ANGINA PECTORIS [None]
  - ANXIETY [None]
  - ARTHRALGIA [None]
  - BLOOD GLUCOSE INCREASED [None]
  - CHEST PAIN [None]
  - DYSPNOEA [None]
  - GENERALISED OEDEMA [None]
  - HEPATIC ENZYME INCREASED [None]
  - IMPAIRED WORK ABILITY [None]
  - PAIN [None]
  - PALPITATIONS [None]
  - PULMONARY OEDEMA [None]
  - SUICIDAL IDEATION [None]
  - UNEVALUABLE EVENT [None]
